FAERS Safety Report 6218020-3 (Version None)
Quarter: 2009Q2

REPORT INFORMATION
  Report Type: 
  Country: None (occurrence: None)
  Receive Date: 20090604
  Receipt Date: 20090604
  Transmission Date: 20091009
  Serious: Yes (Other)
  Sender: FDA-Public Use
  Company Number: None

PATIENT
  Age: 63 Year
  Sex: Male
  Weight: 77.1115 kg

DRUGS (1)
  1. LEVITRA [Suspect]
     Indication: ADVERSE EVENT
     Dosage: 10 MG ONCE PO
     Route: 048
     Dates: start: 20090529, end: 20090531

REACTIONS (1)
  - HICCUPS [None]
